FAERS Safety Report 4689370-7 (Version None)
Quarter: 2005Q2

REPORT INFORMATION
  Report Type: 
  Country: None (occurrence: None)
  Receive Date: 20050608
  Receipt Date: 20050209
  Transmission Date: 20051028
  Serious: No
  Sender: FDA-Public Use
  Company Number: 2005-BP-01199BP

PATIENT
  Age: 74 Year
  Sex: Female

DRUGS (9)
  1. SPIRIVA [Suspect]
     Indication: CHRONIC OBSTRUCTIVE PULMONARY DISEASE
     Dosage: 18 MCG (18 MCG, QD), IH
     Route: 055
     Dates: start: 20041210
  2. SPIRIVA [Suspect]
  3. ACETYLSALICYLIC ACID SRT [Suspect]
  4. MULTIVITAMIN [Concomitant]
  5. CARDIZEM [Concomitant]
  6. ZESTRIL [Concomitant]
  7. GLUCOPHAGE [Concomitant]
  8. GLUCOTROL [Concomitant]
  9. COMBIVENT [Concomitant]

REACTIONS (4)
  - COUGH [None]
  - INFLUENZA [None]
  - NASAL SINUS DRAINAGE [None]
  - PHARYNGOLARYNGEAL PAIN [None]
